FAERS Safety Report 14954505 (Version 1)
Quarter: 2018Q2

REPORT INFORMATION
  Report Type: Spontaneous
  Country: US (occurrence: US)
  Receive Date: 20180509
  Receipt Date: 20180509
  Transmission Date: 20180711
  Serious: Yes (Disabling)
  Sender: FDA-Public Use
  Company Number: None

PATIENT
  Age: 75 Year
  Sex: Female
  Weight: 77.11 kg

DRUGS (7)
  1. HYDROCHLOROTHIAZIDE. [Concomitant]
     Active Substance: HYDROCHLOROTHIAZIDE
  2. METOPROLOL SUCC (TOPROL) ER [Concomitant]
  3. ALENDRONATE [Suspect]
     Active Substance: ALENDRONATE SODIUM
     Indication: BONE LOSS
     Dosage: ?          QUANTITY:12 TOT - TOTAL;?
     Route: 048
     Dates: start: 20161023, end: 20161211
  4. CALCIUM 600MG PLUS D3 800 IU [Concomitant]
  5. QUNOL MEGA CQ10 [Concomitant]
  6. CHOLEST OFF PLUS [Concomitant]
  7. BAYER ASPIRIN [Concomitant]
     Active Substance: ASPIRIN

REACTIONS (2)
  - Arthralgia [None]
  - Swelling [None]

NARRATIVE: CASE EVENT DATE: 20161023
